FAERS Safety Report 19173390 (Version 1)
Quarter: 2021Q2

REPORT INFORMATION
  Report Type: Other
  Country: IT (occurrence: IT)
  Receive Date: 20210423
  Receipt Date: 20210423
  Transmission Date: 20210717
  Serious: Yes (Hospitalization)
  Sender: FDA-Public Use
  Company Number: IT-MACLEODS PHARMACEUTICALS US LTD-MAC2021030880

PATIENT

DRUGS (2)
  1. BROMAZEPAM ABC 2.5 MG / ML ORAL DROPS, SOLUTION [Suspect]
     Active Substance: BROMAZEPAM
     Indication: PRODUCT USED FOR UNKNOWN INDICATION
     Dosage: 50 MILLIGRAM TOTAL (ORAL DROPS)
     Route: 048
     Dates: start: 20210331, end: 20210331
  2. ESCITALOPRAM [Suspect]
     Active Substance: ESCITALOPRAM OXALATE
     Indication: PRODUCT USED FOR UNKNOWN INDICATION
     Dosage: 100 MILLIGRAM TOTAL (ORAL DROPS)
     Route: 048
     Dates: start: 20210331, end: 20210331

REACTIONS (2)
  - Substance abuse [Recovering/Resolving]
  - Sopor [Recovering/Resolving]

NARRATIVE: CASE EVENT DATE: 20210401
